FAERS Safety Report 17788448 (Version 1)
Quarter: 2020Q2

REPORT INFORMATION
  Report Type: Spontaneous
  Country: CN (occurrence: CN)
  Receive Date: 20200515
  Receipt Date: 20200515
  Transmission Date: 20200714
  Serious: Yes (Other)
  Sender: FDA-Public Use
  Company Number: CN-ROCHE-2570884

PATIENT
  Age: 58 Year
  Sex: Female

DRUGS (39)
  1. CYCLOPHOSPHAMIDE. [Concomitant]
     Active Substance: CYCLOPHOSPHAMIDE
     Dosage: EPOCH+R REIGIMEN, DAY5
     Route: 065
     Dates: start: 20190622
  2. METHYLPREDNISOLONE SODIUM SUCCINATE. [Concomitant]
     Active Substance: METHYLPREDNISOLONE SODIUM SUCCINATE
     Indication: DIFFUSE LARGE B-CELL LYMPHOMA
     Dosage: 5 DAYS
     Route: 065
     Dates: start: 20190903
  3. METHYLPREDNISOLONE SODIUM SUCCINATE. [Concomitant]
     Active Substance: METHYLPREDNISOLONE SODIUM SUCCINATE
     Dosage: 5 DAYS
     Route: 065
     Dates: start: 20190925
  4. IBRUTINIB [Concomitant]
     Active Substance: IBRUTINIB
     Indication: DIFFUSE LARGE B-CELL LYMPHOMA
     Route: 065
     Dates: start: 20190101
  5. ETOPOSIDE. [Concomitant]
     Active Substance: ETOPOSIDE
     Indication: DIFFUSE LARGE B-CELL LYMPHOMA
     Dosage: EPOCH REGIMEN DAY1-4
     Route: 041
     Dates: start: 2019
  6. DEXAMETHASONE. [Concomitant]
     Active Substance: DEXAMETHASONE
     Route: 065
     Dates: start: 20190925
  7. DEXAMETHASONE. [Concomitant]
     Active Substance: DEXAMETHASONE
     Dosage: 5 DAYS
     Route: 065
     Dates: start: 20200101
  8. CYCLOPHOSPHAMIDE. [Concomitant]
     Active Substance: CYCLOPHOSPHAMIDE
     Indication: DIFFUSE LARGE B-CELL LYMPHOMA
     Dosage: EPOCH REGIMEN DAY5
     Route: 065
     Dates: start: 20190101
  9. ETOPOSIDE. [Concomitant]
     Active Substance: ETOPOSIDE
     Dosage: EPOCH+R REIGIMEN, DAY1-4
     Route: 041
     Dates: start: 20190622
  10. ETOPOSIDE. [Concomitant]
     Active Substance: ETOPOSIDE
     Dosage: 3 DAYS, COPE REGIMEN
     Route: 065
     Dates: start: 20191028
  11. DEXAMETHASONE. [Concomitant]
     Active Substance: DEXAMETHASONE
     Indication: DIFFUSE LARGE B-CELL LYMPHOMA
     Dosage: EPOCH REGIMEN DAY1-5
     Route: 041
     Dates: start: 20190101
  12. METHYLPREDNISOLONE SODIUM SUCCINATE. [Concomitant]
     Active Substance: METHYLPREDNISOLONE SODIUM SUCCINATE
     Dosage: 5 DAYS
     Route: 065
     Dates: start: 20191028
  13. METHOTREXATE. [Concomitant]
     Active Substance: METHOTREXATE
     Route: 065
     Dates: start: 20190925
  14. RITUXIMAB. [Suspect]
     Active Substance: RITUXIMAB
     Route: 065
     Dates: start: 20190925
  15. VINDESINE [Concomitant]
     Active Substance: VINDESINE
     Dosage: COPE REGIMEN
     Route: 042
  16. PIRARUBICIN [Concomitant]
     Active Substance: PIRARUBICIN
     Route: 042
  17. DEXAMETHASONE. [Concomitant]
     Active Substance: DEXAMETHASONE
     Route: 065
     Dates: start: 20190903
  18. RITUXIMAB. [Suspect]
     Active Substance: RITUXIMAB
     Indication: DIFFUSE LARGE B-CELL LYMPHOMA
     Dosage: EPOCH+R REIGIMEN, DAY6
     Route: 065
     Dates: start: 20190622
  19. VINDESINE [Concomitant]
     Active Substance: VINDESINE
     Indication: DIFFUSE LARGE B-CELL LYMPHOMA
     Dosage: EPOCH REGIMEN DAY1-4
     Route: 041
     Dates: start: 20190101
  20. DEXAMETHASONE. [Concomitant]
     Active Substance: DEXAMETHASONE
     Route: 065
     Dates: start: 20191028
  21. METHOTREXATE. [Concomitant]
     Active Substance: METHOTREXATE
     Route: 065
     Dates: start: 20191028
  22. DOXORUBICIN [Concomitant]
     Active Substance: DOXORUBICIN
     Indication: DIFFUSE LARGE B-CELL LYMPHOMA
     Route: 065
     Dates: start: 20191028
  23. RITUXIMAB. [Suspect]
     Active Substance: RITUXIMAB
     Route: 065
     Dates: start: 20190903
  24. ETOPOSIDE. [Concomitant]
     Active Substance: ETOPOSIDE
     Dosage: 3 DAYS
     Route: 065
     Dates: start: 20190903
  25. PIRARUBICIN [Concomitant]
     Active Substance: PIRARUBICIN
     Dosage: EPOCH+R REIGIMEN, DAY1-4
     Route: 041
     Dates: start: 20190622
  26. METHOTREXATE. [Concomitant]
     Active Substance: METHOTREXATE
     Route: 065
     Dates: start: 20190903
  27. VINDESINE [Concomitant]
     Active Substance: VINDESINE
     Dosage: EPOCH+R REIGIMEN, DAY1-4
     Route: 041
     Dates: start: 20190622
  28. DEXAMETHASONE. [Concomitant]
     Active Substance: DEXAMETHASONE
     Dosage: EPOCH+R REIGIMEN, DAY1-5
     Route: 041
     Dates: start: 20190622
  29. CYCLOPHOSPHAMIDE. [Concomitant]
     Active Substance: CYCLOPHOSPHAMIDE
     Dosage: COPE REGIMEN
     Route: 065
     Dates: start: 20200101
  30. CYTARABINE. [Concomitant]
     Active Substance: CYTARABINE
     Indication: DIFFUSE LARGE B-CELL LYMPHOMA
     Route: 065
     Dates: start: 20190903
  31. CYTARABINE. [Concomitant]
     Active Substance: CYTARABINE
     Route: 065
     Dates: start: 20190925
  32. CYTARABINE. [Concomitant]
     Active Substance: CYTARABINE
     Route: 065
     Dates: start: 20191028
  33. METHOTREXATE. [Concomitant]
     Active Substance: METHOTREXATE
     Indication: DIFFUSE LARGE B-CELL LYMPHOMA
     Route: 065
     Dates: start: 20190903
  34. METHOTREXATE. [Concomitant]
     Active Substance: METHOTREXATE
     Route: 065
     Dates: start: 20191028
  35. RITUXIMAB. [Suspect]
     Active Substance: RITUXIMAB
     Route: 065
     Dates: start: 20191028
  36. ETOPOSIDE. [Concomitant]
     Active Substance: ETOPOSIDE
     Dosage: 3 DAYS
     Route: 065
     Dates: start: 20190925
  37. ETOPOSIDE. [Concomitant]
     Active Substance: ETOPOSIDE
     Dosage: 3 DAYS
     Route: 065
     Dates: start: 20191028
  38. PIRARUBICIN [Concomitant]
     Active Substance: PIRARUBICIN
     Indication: DIFFUSE LARGE B-CELL LYMPHOMA
     Dosage: EPOCH REGIMEN DAY1-4
     Route: 041
     Dates: start: 2019
  39. METHOTREXATE. [Concomitant]
     Active Substance: METHOTREXATE
     Route: 065
     Dates: start: 20190925

REACTIONS (4)
  - Mitral valve incompetence [Unknown]
  - Anaemia [Unknown]
  - Left ventricular dysfunction [Unknown]
  - Coagulopathy [Unknown]

NARRATIVE: CASE EVENT DATE: 2020
